FAERS Safety Report 7320795-7 (Version None)
Quarter: 2011Q1

REPORT INFORMATION
  Report Type: 
  Country: None (occurrence: None)
  Receive Date: 20110228
  Receipt Date: 20110202
  Transmission Date: 20110831
  Serious: Yes (Hospitalization, Other)
  Sender: FDA-Public Use
  Company Number: US-ROCHE-757131

PATIENT
  Sex: Male
  Weight: 93 kg

DRUGS (5)
  1. COPEGUS [Suspect]
     Indication: HEPATITIS C
     Route: 065
  2. ALCOHOL WIPE [Suspect]
     Route: 065
  3. PEGASYS [Suspect]
     Indication: HEPATITIS C
     Route: 065
  4. PEGASYS [Suspect]
     Dosage: FORM:PRE FILLED SYRINGE
     Route: 065
     Dates: end: 20110110
  5. COPEGUS [Suspect]
     Route: 065
     Dates: end: 20110110

REACTIONS (10)
  - PLATELET COUNT DECREASED [None]
  - BACILLUS INFECTION [None]
  - RASH [None]
  - ABDOMINAL PAIN [None]
  - INJECTION SITE INFECTION [None]
  - PYREXIA [None]
  - INJECTION SITE ULCER [None]
  - DIARRHOEA [None]
  - WHITE BLOOD CELL COUNT INCREASED [None]
  - INJECTION SITE SCAB [None]
